FAERS Safety Report 8611560-9 (Version None)
Quarter: 2012Q3

REPORT INFORMATION
  Report Type: 
  Country: None (occurrence: None)
  Receive Date: 20120822
  Receipt Date: 20120815
  Transmission Date: 20120928
  Serious: Yes (Disabling)
  Sender: FDA-Public Use
  Company Number: PHHY2012GB070546

PATIENT
  Age: 87 Year
  Sex: Female
  Weight: 65 kg

DRUGS (6)
  1. CLOPIDEGREL [Concomitant]
     Indication: ISCHAEMIC HEART DISEASE PROPHYLAXIS
     Dosage: 75 MG
     Route: 048
  2. SYMBICORT [Concomitant]
     Dosage: 2 DF
  3. OMEPRAZOLE [Concomitant]
     Indication: DYSPEPSIA
     Dosage: 1 DF
     Route: 048
  4. ASPIRIN [Concomitant]
     Dosage: 75 MG
     Route: 048
  5. ATORVASTATIN [Suspect]
     Indication: CARDIOVASCULAR EVENT PROPHYLAXIS
     Dosage: 40 MG
     Route: 048
     Dates: start: 20090101, end: 20120716
  6. TERBUTALINE [Concomitant]
     Dosage: 2 DF

REACTIONS (6)
  - DEMENTIA [None]
  - BALANCE DISORDER [None]
  - HYPERSOMNIA [None]
  - INCONTINENCE [None]
  - ASTHENIA [None]
  - AMNESIA [None]
